FAERS Safety Report 9849306 (Version 1)
Quarter: 2014Q1

REPORT INFORMATION
  Report Type: Spontaneous
  Country: IN (occurrence: None)
  Receive Date: 20140124
  Receipt Date: 20140124
  Transmission Date: 20141002
  Serious: Yes (Hospitalization)
  Sender: FDA-Public Use
  Company Number: LORA20140001

PATIENT
  Age: 57 Year
  Sex: Male

DRUGS (5)
  1. LORAZEPAM [Suspect]
     Indication: SOMATOFORM DISORDER
     Route: 048
  2. LORAZEPAM [Suspect]
     Indication: TENSION
     Route: 048
  3. AMLODIPINE BESYLATE TABLETS 5MG (AMLODIPINE BESILATE) (5 MILLIGRAM, TABLETS) (AMLODIPINE BESILATE)? [Concomitant]
  4. LOSARTAN POTASSIUM TABLETS 50MG (LOSARTAN POTASSIUM) (50 MILLIGRAM, TABLETS) (LOSARTAN POTASSIUM)? [Concomitant]
  5. HYDROCHLOROTHIAZIDE CAPSULES 12.5MG (HYDROCHLOROTHIAZIDE) (12.5 MILLIGRAM, CAPSULES) (HYDROCHLOROTHIAZIDE) [Concomitant]

REACTIONS (26)
  - Depression [None]
  - Treatment noncompliance [None]
  - Incorrect drug administration duration [None]
  - Anxiety [None]
  - Restlessness [None]
  - Nausea [None]
  - Hyperhidrosis [None]
  - Insomnia [None]
  - Tremor [None]
  - Balance disorder [None]
  - Dysstasia [None]
  - Gait disturbance [None]
  - Urinary incontinence [None]
  - Dyskinesia [None]
  - Grimacing [None]
  - Psychomotor retardation [None]
  - General physical health deterioration [None]
  - Diet refusal [None]
  - Posturing [None]
  - Mutism [None]
  - Negativism [None]
  - Social avoidant behaviour [None]
  - Catatonia [None]
  - Back pain [None]
  - Somatoform disorder [None]
  - Drug withdrawal syndrome [None]
